FAERS Safety Report 10174871 (Version 3)
Quarter: 2014Q4

REPORT INFORMATION
  Report Type: Spontaneous
  Country: US (occurrence: US)
  Receive Date: 20140515
  Receipt Date: 20141002
  Transmission Date: 20150528
  Serious: Yes (Other)
  Sender: FDA-Public Use
  Company Number: US-BAYER-2014-071287

PATIENT
  Age: 42 Year
  Sex: Female
  Weight: 65.76 kg

DRUGS (7)
  1. YASMIN [Suspect]
     Active Substance: DROSPIRENONE\ETHINYL ESTRADIOL
     Dosage: UNK
     Dates: start: 200701, end: 200806
  2. OLOPATADINE [Concomitant]
     Active Substance: OLOPATADINE
     Dosage: 0.6 %, QD
     Route: 045
     Dates: start: 20090410, end: 20101223
  3. PROPRANOLOL [Concomitant]
     Active Substance: PROPRANOLOL\PROPRANOLOL HYDROCHLORIDE
     Dosage: 20 MG, BID ONE TAB
  4. MECLIZINE [Concomitant]
     Active Substance: MECLIZINE\MECLIZINE HYDROCHLORIDE
     Dosage: 12.5 MG, TID
     Route: 048
     Dates: start: 20101209
  5. AMITIZA [Concomitant]
     Active Substance: LUBIPROSTONE
     Dosage: 24 MCG ONE BID
     Route: 048
     Dates: start: 20100122, end: 20101229
  6. FLUVIRINE [Concomitant]
     Dosage: UNK
     Dates: start: 20100901
  7. OCELLA [Suspect]
     Active Substance: DROSPIRENONE\ETHINYL ESTRADIOL
     Dosage: UNK
     Dates: start: 200806, end: 201012

REACTIONS (8)
  - Disturbance in attention [None]
  - Ataxia [None]
  - Gait disturbance [None]
  - Vertigo [None]
  - Cerebrovascular accident [None]
  - Injury [None]
  - Pain [None]
  - Migraine [None]

NARRATIVE: CASE EVENT DATE: 20101215
